FAERS Safety Report 15483914 (Version 1)
Quarter: 2018Q4

REPORT INFORMATION
  Report Type: Spontaneous
  Country: US (occurrence: US)
  Receive Date: 20181010
  Receipt Date: 20181010
  Transmission Date: 20190205
  Serious: No
  Sender: FDA-Public Use
  Company Number: None

PATIENT
  Age: 72 Year
  Sex: Female

DRUGS (2)
  1. LEVOTHYROXINE. [Suspect]
     Active Substance: LEVOTHYROXINE
     Indication: THYROID DISORDER
     Route: 048
     Dates: start: 20180920, end: 20181005
  2. LEVOTHYROXINE 112MCG [Concomitant]
     Active Substance: LEVOTHYROXINE
     Dates: start: 20180920, end: 20181005

REACTIONS (5)
  - Asthenia [None]
  - Pain in extremity [None]
  - Product substitution [None]
  - Gait disturbance [None]
  - Vomiting [None]

NARRATIVE: CASE EVENT DATE: 20180920
